FAERS Safety Report 9397684 (Version 1)
Quarter: 2013Q3

REPORT INFORMATION
  Report Type: Spontaneous
  Country: NL (occurrence: NL)
  Receive Date: 20130712
  Receipt Date: 20130712
  Transmission Date: 20140515
  Serious: Yes (Other)
  Sender: FDA-Public Use
  Company Number: NL-AMGEN-NLDSP2013048572

PATIENT
  Age: 83 Year
  Sex: Female

DRUGS (2)
  1. ENBREL [Suspect]
     Indication: RHEUMATOID ARTHRITIS
     Dosage: 50 MG, WEEKLY
     Route: 065
     Dates: start: 2009
  2. ENBREL [Suspect]
     Dosage: 50 MG, EVERY TWO WEEKS
     Route: 065

REACTIONS (3)
  - Petit mal epilepsy [Unknown]
  - Rheumatoid arthritis [Unknown]
  - Fall [Unknown]
